FAERS Safety Report 25285802 (Version 1)
Quarter: 2025Q2

REPORT INFORMATION
  Report Type: Spontaneous
  Country: GB (occurrence: GB)
  Receive Date: 20250509
  Receipt Date: 20250509
  Transmission Date: 20250717
  Serious: Yes (Other)
  Sender: ACCORD
  Company Number: None

PATIENT
  Age: 70 Year
  Sex: Female
  Weight: 86 kg

DRUGS (5)
  1. SIMVASTATIN [Suspect]
     Active Substance: SIMVASTATIN
     Indication: Adverse drug reaction
     Dosage: 1 X 10MG AT NIGHT
     Dates: end: 20250403
  2. APIXABAN [Concomitant]
     Active Substance: APIXABAN
  3. FELODIPINE [Concomitant]
     Active Substance: FELODIPINE
  4. ALLOPURINOL [Concomitant]
     Active Substance: ALLOPURINOL
  5. RAMIPRIL [Concomitant]
     Active Substance: RAMIPRIL
     Indication: Adverse drug reaction

REACTIONS (1)
  - Diarrhoea [Recovering/Resolving]

NARRATIVE: CASE EVENT DATE: 20250316
